FAERS Safety Report 15446353 (Version 1)
Quarter: 2018Q3

REPORT INFORMATION
  Report Type: Report from Study
  Country: ES (occurrence: ES)
  Receive Date: 20180928
  Receipt Date: 20180928
  Transmission Date: 20181010
  Serious: Yes (Hospitalization)
  Sender: FDA-Public Use
  Company Number: ES-PFIZER INC-2018386893

PATIENT
  Age: 77 Year
  Sex: Female
  Weight: 57.3 kg

DRUGS (11)
  1. OXALIPLATIN. [Suspect]
     Active Substance: OXALIPLATIN
     Indication: PANCREATIC CARCINOMA METASTATIC
     Dosage: 132 MG, CYCLIC
     Route: 042
     Dates: start: 20180801, end: 20180801
  2. FENTANYL. [Suspect]
     Active Substance: FENTANYL
     Indication: PAIN
     Dosage: UNK
  3. FENTANILO [FENTANYL] [Concomitant]
  4. OMEPRAZOL [Concomitant]
     Active Substance: OMEPRAZOLE
  5. FENTANYL. [Suspect]
     Active Substance: FENTANYL
     Dosage: 50 UG, UNK
     Route: 062
     Dates: start: 20180802
  6. HYDROCHLOROTHIAZIDE. [Concomitant]
     Active Substance: HYDROCHLOROTHIAZIDE
  7. FLUOROURACIL. [Suspect]
     Active Substance: FLUOROURACIL
     Dosage: UNK, CYCLIC
     Dates: start: 20180801, end: 20180803
  8. HIBOR [Concomitant]
     Active Substance: BEMIPARIN SODIUM
     Dosage: UNK
     Dates: start: 20180711
  9. ADIRO [Concomitant]
     Active Substance: ASPIRIN
  10. SIMVASTATINA [Concomitant]
     Active Substance: SIMVASTATIN
  11. CALCIUM FOLINATE [Suspect]
     Active Substance: LEUCOVORIN CALCIUM
     Indication: PANCREATIC CARCINOMA METASTATIC
     Dosage: 620 MG, CYCLIC
     Route: 042
     Dates: start: 20180801, end: 20180801

REACTIONS (3)
  - Neoplasm progression [Recovered/Resolved]
  - General physical health deterioration [Recovered/Resolved]
  - Vomiting [Recovered/Resolved]

NARRATIVE: CASE EVENT DATE: 20180803
